FAERS Safety Report 11190188 (Version 1)
Quarter: 2015Q2

REPORT INFORMATION
  Report Type: Spontaneous
  Country: IT (occurrence: IT)
  Receive Date: 20150615
  Receipt Date: 20150615
  Transmission Date: 20150821
  Serious: Yes (Life-Threatening)
  Sender: FDA-Public Use
  Company Number: IT-SA-2015SA081427

PATIENT
  Age: 85 Year
  Sex: Male

DRUGS (4)
  1. TAMSULOSIN HYDROCHLORIDE. [Concomitant]
     Active Substance: TAMSULOSIN HYDROCHLORIDE
     Indication: BENIGN PROSTATIC HYPERPLASIA
  2. TORVAST [Concomitant]
     Active Substance: ATORVASTATIN
     Indication: HYPERCHOLESTEROLAEMIA
     Route: 048
  3. PLAVIX [Suspect]
     Active Substance: CLOPIDOGREL BISULFATE
     Route: 048
     Dates: start: 20130829, end: 2015
  4. ATENOLOL. [Concomitant]
     Active Substance: ATENOLOL
     Indication: HYPERTENSION

REACTIONS (5)
  - Cerebral haemorrhage [Not Recovered/Not Resolved]
  - Melaena [Not Recovered/Not Resolved]
  - Haematemesis [Not Recovered/Not Resolved]
  - Fall [Unknown]
  - Haemobilia [Not Recovered/Not Resolved]

NARRATIVE: CASE EVENT DATE: 20150607
